FAERS Safety Report 9982710 (Version 4)
Quarter: 2014Q2

REPORT INFORMATION
  Report Type: Report from Study
  Country: US (occurrence: US)
  Receive Date: 20140307
  Receipt Date: 20140522
  Transmission Date: 20141212
  Serious: Yes (Disabling)
  Sender: FDA-Public Use
  Company Number: PHEH2014US004487

PATIENT
  Age: 52 Year
  Sex: Female

DRUGS (6)
  1. CLOZARIL [Suspect]
     Indication: SCHIZOPHRENIA SIMPLE
     Dosage: 100 MG, TID, THREE TIMES A DAY
     Route: 048
  2. CLOZARIL [Suspect]
     Indication: SCHIZOAFFECTIVE DISORDER
     Dosage: 300 MG, QD, DAILY
     Route: 048
     Dates: start: 20140214
  3. CLOZAPINE [Suspect]
     Indication: SCHIZOPHRENIA SIMPLE
     Dosage: UNK
  4. DEPAKOTE [Concomitant]
     Indication: SCHIZOAFFECTIVE DISORDER
     Dosage: 500 UKN, BID
     Route: 048
     Dates: start: 20030730
  5. XANAX [Concomitant]
     Indication: SCHIZOAFFECTIVE DISORDER
     Dosage: 25 MG, PRN
     Route: 048
     Dates: start: 20030730
  6. EFFEXOR [Concomitant]
     Indication: SCHIZOAFFECTIVE DISORDER
     Dosage: 112.5 MG, QD (37.5 MG AND 75 MG)
     Route: 048
     Dates: start: 20030720

REACTIONS (8)
  - Diplopia [Recovered/Resolved]
  - Vision blurred [Recovered/Resolved]
  - Psychotic disorder [Recovered/Resolved]
  - Paranoia [Recovered/Resolved]
  - Delusion [Recovered/Resolved]
  - Constipation [Recovered/Resolved]
  - Nausea [Recovered/Resolved]
  - Weight increased [Recovered/Resolved]
